FAERS Safety Report 14752997 (Version 4)
Quarter: 2019Q1

REPORT INFORMATION
  Report Type: Spontaneous
  Country: US (occurrence: US)
  Receive Date: 20180412
  Receipt Date: 20190107
  Transmission Date: 20190417
  Serious: Yes (Hospitalization, Other)
  Sender: FDA-Public Use
  Company Number: US-PFIZER INC-2018148701

PATIENT
  Age: 50 Year
  Sex: Male

DRUGS (5)
  1. LYRICA [Suspect]
     Active Substance: PREGABALIN
     Dosage: 100 MG, 2X/DAY
     Dates: start: 20171227, end: 20180301
  2. TECFIDERA [Concomitant]
     Active Substance: DIMETHYL FUMARATE
     Indication: RENAL DISORDER
     Dosage: 240 MG, 2X/DAY
     Dates: start: 201603, end: 201808
  3. LYRICA [Suspect]
     Active Substance: PREGABALIN
     Indication: MULTIPLE SCLEROSIS
     Dosage: 200MG PER DAY
     Dates: start: 20171227, end: 20180227
  4. LYRICA [Suspect]
     Active Substance: PREGABALIN
     Dosage: 50 MG, 2X/DAY
     Dates: start: 20161017
  5. LYRICA [Suspect]
     Active Substance: PREGABALIN
     Indication: HYPOAESTHESIA
     Dosage: 100MG PER DAY (50MG CAPSULE IN THE MORNING AND IN THE EVENING)
     Dates: start: 20161126, end: 20171226

REACTIONS (18)
  - Hyperaesthesia [Recovered/Resolved]
  - Hypoaesthesia [Recovered/Resolved]
  - Diplopia [Recovered/Resolved]
  - Renal cyst [Not Recovered/Not Resolved]
  - Renal failure [Not Recovered/Not Resolved]
  - Small intestine ulcer [Not Recovered/Not Resolved]
  - Hepatic cyst [Not Recovered/Not Resolved]
  - Hypertension [Not Recovered/Not Resolved]
  - Dysuria [Not Recovered/Not Resolved]
  - Oedema peripheral [Unknown]
  - Toxicity to various agents [Unknown]
  - Abdominal distension [Not Recovered/Not Resolved]
  - Urine odour abnormal [Unknown]
  - Peripheral swelling [Unknown]
  - Product use in unapproved indication [Unknown]
  - Peroneal nerve palsy [Not Recovered/Not Resolved]
  - Intervertebral disc protrusion [Unknown]
  - Urinary tract infection [Unknown]

NARRATIVE: CASE EVENT DATE: 20161126
